FAERS Safety Report 14988993 (Version 5)
Quarter: 2019Q2

REPORT INFORMATION
  Report Type: Spontaneous
  Country: CA (occurrence: CA)
  Receive Date: 20180608
  Receipt Date: 20190529
  Transmission Date: 20190711
  Serious: Yes (Other)
  Sender: FDA-Public Use
  Company Number: CA-CELLTRION INC.-2018CA018671

PATIENT

DRUGS (11)
  1. INFLECTRA [Suspect]
     Active Substance: INFLIXIMAB-DYYB
     Indication: CROHN^S DISEASE
     Dosage: 535 MG, (0, 2, 6, THEN EVERY 8 WEEKS)
     Route: 042
     Dates: start: 20180220
  2. PURINETHOL [Concomitant]
     Active Substance: MERCAPTOPURINE
     Dosage: 50 MG, 1X/DAY TABS (TABLETS)
     Route: 048
     Dates: start: 2009
  3. INFLECTRA [Suspect]
     Active Substance: INFLIXIMAB-DYYB
     Dosage: 600 MG,  (EVERY 8 WEEKS)
     Route: 042
     Dates: start: 20190108
  4. INFLECTRA [Suspect]
     Active Substance: INFLIXIMAB-DYYB
     Dosage: 600 MG, (EVERY 8 WEEKS)
     Route: 042
     Dates: start: 20180403
  5. ADVIL [IBUPROFEN] [Concomitant]
     Active Substance: IBUPROFEN
     Dosage: UNK
  6. INFLECTRA [Suspect]
     Active Substance: INFLIXIMAB-DYYB
     Dosage: 5 MG/KG,  ( 0, 2, 6, THEN EVERY 8 WEEKS)
     Route: 042
     Dates: start: 20180306
  7. ZYLOPRIM [Concomitant]
     Active Substance: ALLOPURINOL
     Dosage: 50 MG, 1X/DAY TABS (TABLETS)
     Route: 048
     Dates: start: 201701
  8. PREDNISONE. [Concomitant]
     Active Substance: PREDNISONE
     Dosage: 40 MG, 1X/DAY  TABS (TABLETS) (TAPERING)
     Route: 048
     Dates: start: 20180127
  9. INFLECTRA [Suspect]
     Active Substance: INFLIXIMAB-DYYB
     Dosage: 600 MG, (EVERY 8 WEEKS)
     Route: 042
     Dates: start: 20180403
  10. INFLECTRA [Suspect]
     Active Substance: INFLIXIMAB-DYYB
     Dosage: 600 MG, (EVERY 8 WEEKS)
     Route: 042
     Dates: start: 20180529
  11. INFLECTRA [Suspect]
     Active Substance: INFLIXIMAB-DYYB
     Dosage: 600 MG,  (EVERY 8 WEEKS)
     Route: 042
     Dates: start: 20190305

REACTIONS (2)
  - Condition aggravated [Recovered/Resolved]
  - Arthropathy [Unknown]

NARRATIVE: CASE EVENT DATE: 20180403
